FAERS Safety Report 13101945 (Version 5)
Quarter: 2017Q2

REPORT INFORMATION
  Report Type: Spontaneous
  Country: PR (occurrence: PR)
  Receive Date: 20170110
  Receipt Date: 20170511
  Transmission Date: 20170830
  Serious: Yes (Other)
  Sender: FDA-Public Use
  Company Number: PR-PFIZER INC-2017002781

PATIENT
  Age: 72 Year
  Sex: Female
  Weight: 70.74 kg

DRUGS (3)
  1. FASLODEX [Suspect]
     Active Substance: FULVESTRANT
     Indication: BREAST CANCER
     Dosage: 500 MG, ONCE A MONTH
     Route: 042
     Dates: start: 20150209, end: 20170508
  2. IBRANCE [Suspect]
     Active Substance: PALBOCICLIB
     Indication: BREAST CANCER
     Dosage: 100 MG, CYCLIC (DAILY FOR 21 DAYS)
     Route: 048
     Dates: start: 20161101
  3. IBRANCE [Suspect]
     Active Substance: PALBOCICLIB
     Dosage: 100 MG, CYCLIC (DAILY FOR 21 DAYS)
     Route: 048
     Dates: end: 20170508

REACTIONS (6)
  - Paraesthesia [Unknown]
  - Haemorrhage [Unknown]
  - Pain [Unknown]
  - Tumour marker increased [Unknown]
  - Mouth ulceration [Unknown]
  - Weight increased [Recovered/Resolved]
